FAERS Safety Report 4535088-0 (Version None)
Quarter: 2004Q4

REPORT INFORMATION
  Report Type: 
  Country: None (occurrence: None)
  Receive Date: 20041214
  Receipt Date: 20040819
  Transmission Date: 20050328
  Serious: No
  Sender: FDA-Public Use
  Company Number: 2004225611US

PATIENT
  Age: 61 Year
  Sex: Female
  Weight: 68 kg

DRUGS (7)
  1. BEXTRA [Suspect]
     Indication: JOINT INJURY
     Dosage: 20 MG, QD, ORAL
     Route: 048
     Dates: start: 20040714, end: 20040721
  2. FLONASE [Concomitant]
  3. SINGULAIR [Concomitant]
  4. ADVAIR DISKUS 100/50 [Concomitant]
  5. ALLEGRA [Concomitant]
  6. ACETYLSALICYLIC ACID SRT [Concomitant]
  7. OGEN [Concomitant]

REACTIONS (1)
  - CANDIDIASIS [None]
